FAERS Safety Report 26047133 (Version 1)
Quarter: 2025Q4

REPORT INFORMATION
  Report Type: Spontaneous
  Country: EU (occurrence: EU)
  Receive Date: 20251114
  Receipt Date: 20251114
  Transmission Date: 20260117
  Serious: Yes (Other)
  Sender: JOHNSON AND JOHNSON
  Company Number: None

PATIENT
  Age: 58 Year
  Sex: Female

DRUGS (1)
  1. DARATUMUMAB [Suspect]
     Active Substance: DARATUMUMAB
     Indication: Product used for unknown indication
     Route: 058
     Dates: start: 20251016, end: 20251016

REACTIONS (3)
  - Erythema of eyelid [Recovered/Resolved]
  - Medication error [Recovered/Resolved]
  - Ocular toxicity [Recovered/Resolved]

NARRATIVE: CASE EVENT DATE: 20251016
